FAERS Safety Report 7626724-0 (Version None)
Quarter: 2011Q3

REPORT INFORMATION
  Report Type: 
  Country: None (occurrence: None)
  Receive Date: 20110714
  Receipt Date: 20110701
  Transmission Date: 20111222
  Serious: Yes (Death, Other)
  Sender: FDA-Public Use
  Company Number: 20110473

PATIENT
  Sex: Male

DRUGS (1)
  1. VENOFER [Suspect]
     Dosage: 400 MG

REACTIONS (3)
  - ANAPHYLACTIC REACTION [None]
  - INCORRECT DRUG ADMINISTRATION RATE [None]
  - LACTIC ACIDOSIS [None]
